FAERS Safety Report 7745296-3 (Version None)
Quarter: 2011Q3

REPORT INFORMATION
  Report Type: 
  Country: None (occurrence: None)
  Receive Date: 20110819
  Receipt Date: 20110511
  Transmission Date: 20111222
  Serious: Yes (Other)
  Sender: FDA-Public Use
  Company Number: 032029

PATIENT

DRUGS (3)
  1. LACOSAMIDE [Suspect]
     Dates: start: 20100201, end: 20110401
  2. LAMOTRIGINE [Concomitant]
  3. LEVETIRACETAM [Concomitant]

REACTIONS (1)
  - DEPRESSION [None]
